FAERS Safety Report 7298179-X (Version None)
Quarter: 2011Q1

REPORT INFORMATION
  Report Type: 
  Country: None (occurrence: None)
  Receive Date: 20110217
  Receipt Date: 20110125
  Transmission Date: 20110831
  Serious: No
  Sender: FDA-Public Use
  Company Number: US-B.I. PHARMACEUTICALS,INC./RIDGEFIELD-2011-BP-00173BP

PATIENT
  Sex: Female

DRUGS (3)
  1. AMLODIPINE BESYLATE [Concomitant]
  2. ADVAIR [Concomitant]
  3. SPIRIVA [Suspect]
     Indication: CHRONIC OBSTRUCTIVE PULMONARY DISEASE
     Dosage: 18 MCG
     Route: 055

REACTIONS (2)
  - DRUG INEFFECTIVE [None]
  - URTICARIA [None]
